FAERS Safety Report 6442409-0 (Version None)
Quarter: 2009Q4

REPORT INFORMATION
  Report Type: 
  Country: None (occurrence: None)
  Receive Date: 20091112
  Receipt Date: 20091028
  Transmission Date: 20100525
  Serious: Yes (Other)
  Sender: FDA-Public Use
  Company Number: 2009AL007038

PATIENT
  Age: 6 Month
  Sex: Male

DRUGS (1)
  1. HYDROCORTISONE 0.5% CREAM [Suspect]
     Indication: DERMATITIS ATOPIC
     Dosage: BID; TOP
     Route: 061
     Dates: start: 20091006, end: 20091011

REACTIONS (5)
  - APPLICATION SITE BURN [None]
  - APPLICATION SITE ERYTHEMA [None]
  - CONDITION AGGRAVATED [None]
  - ECZEMA [None]
  - PRODUCT SUBSTITUTION ISSUE [None]
